FAERS Safety Report 19434868 (Version 1)
Quarter: 2021Q2

REPORT INFORMATION
  Report Type: Spontaneous
  Country: US (occurrence: US)
  Receive Date: 20210617
  Receipt Date: 20210617
  Transmission Date: 20210717
  Serious: No
  Sender: FDA-Public Use
  Company Number: US-ROCHE-2657652

PATIENT
  Sex: Male

DRUGS (12)
  1. SULFAMETHOXAZOLE;TRIMETHOPRIM [Concomitant]
     Active Substance: SULFAMETHOXAZOLE\TRIMETHOPRIM
  2. SULFAMETHOXAZOLE [Concomitant]
     Active Substance: SULFAMETHOXAZOLE
  3. ACTEMRA [Suspect]
     Active Substance: TOCILIZUMAB
  4. PHISOHEX [Concomitant]
     Active Substance: HEXACHLOROPHENE
  5. TOLMETIN SODIUM. [Concomitant]
     Active Substance: TOLMETIN SODIUM
  6. MUPIROCIN. [Concomitant]
     Active Substance: MUPIROCIN
  7. HYDROCODONE/ACETAMINOPHEN [Concomitant]
     Active Substance: ACETAMINOPHEN\HYDROCODONE
  8. ACTEMRA [Suspect]
     Active Substance: TOCILIZUMAB
     Indication: RHEUMATOID ARTHRITIS
     Dosage: PFS 162 MG 0.9ML SQ
     Route: 058
  9. FLUTICASONE PROPIONATE. [Concomitant]
     Active Substance: FLUTICASONE PROPIONATE
  10. ACTEMRA [Suspect]
     Active Substance: TOCILIZUMAB
  11. CODEINE [Concomitant]
     Active Substance: CODEINE
  12. METHOTREXATE. [Concomitant]
     Active Substance: METHOTREXATE

REACTIONS (1)
  - Localised infection [Unknown]
